FAERS Safety Report 17941790 (Version 1)
Quarter: 2020Q2

REPORT INFORMATION
  Report Type: Other
  Country: AT (occurrence: AT)
  Receive Date: 20200624
  Receipt Date: 20200624
  Transmission Date: 20200714
  Serious: Yes (Hospitalization, Other)
  Sender: FDA-Public Use
  Company Number: AT-INVATECH-000013

PATIENT
  Age: 44 Year
  Sex: Male

DRUGS (3)
  1. CALCITRIOL. [Suspect]
     Active Substance: CALCITRIOL
     Indication: PRODUCT USED FOR UNKNOWN INDICATION
     Dosage: DAILY DOSE OF 1.5 MCG FOR THE LAST 10 YEARS.
  2. PHOSPHORUS [Suspect]
     Active Substance: PHOSPHORUS
     Indication: PRODUCT USED FOR UNKNOWN INDICATION
     Dosage: 1.2-1.6 G OF ELEMENTAL PHOSPHOROUS PER DAY IN 2 DIVIDED DOSES.
     Route: 048
  3. INFLIXIMAB [Concomitant]
     Active Substance: INFLIXIMAB
     Indication: CROHN^S DISEASE

REACTIONS (4)
  - Overdose [Unknown]
  - Osteopetrosis [Recovered/Resolved]
  - Kyphosis [Recovered/Resolved]
  - Ankylosing spondylitis [Recovered/Resolved]
